FAERS Safety Report 17525497 (Version 5)
Quarter: 2020Q3

REPORT INFORMATION
  Report Type: Report from Study
  Country: US (occurrence: US)
  Receive Date: 20200310
  Receipt Date: 20200909
  Transmission Date: 20201102
  Serious: No
  Sender: FDA-Public Use
  Company Number: US-AGIOS-2002US01667

PATIENT

DRUGS (13)
  1. TYLENOL EXTRA STRENGTH [Concomitant]
     Active Substance: ACETAMINOPHEN
     Indication: PRODUCT USED FOR UNKNOWN INDICATION
  2. ZOFRAN [Concomitant]
     Active Substance: ONDANSETRON HYDROCHLORIDE
     Indication: PRODUCT USED FOR UNKNOWN INDICATION
  3. XANAX [Concomitant]
     Active Substance: ALPRAZOLAM
     Indication: PRODUCT USED FOR UNKNOWN INDICATION
     Dosage: UNK
  4. TETRACYCLINE HYDROCHLORIDE. [Concomitant]
     Active Substance: TETRACYCLINE HYDROCHLORIDE
  5. ALPRAZOLAM. [Concomitant]
     Active Substance: ALPRAZOLAM
     Indication: PRODUCT USED FOR UNKNOWN INDICATION
  6. LIDOCAINE. [Concomitant]
     Active Substance: LIDOCAINE
  7. CIPROFLOXACIN. [Concomitant]
     Active Substance: CIPROFLOXACIN
  8. SYNTHROID [Concomitant]
     Active Substance: LEVOTHYROXINE SODIUM
     Indication: PRODUCT USED FOR UNKNOWN INDICATION
  9. LOSARTAN POTASSIUM. [Concomitant]
     Active Substance: LOSARTAN POTASSIUM
     Indication: PRODUCT USED FOR UNKNOWN INDICATION
  10. TIBSOVO [Suspect]
     Active Substance: IVOSIDENIB
     Indication: ACUTE MYELOID LEUKAEMIA
     Dosage: 250 MILLIGRAM, 2 TABLETS (500 MG) DAILY
     Route: 048
     Dates: start: 20200118
  11. VITAMIN B12 [Concomitant]
     Active Substance: CYANOCOBALAMIN
     Indication: PRODUCT USED FOR UNKNOWN INDICATION
  12. LASIX [Concomitant]
     Active Substance: FUROSEMIDE
     Indication: PRODUCT USED FOR UNKNOWN INDICATION
  13. IMODIUM A?D [Concomitant]
     Active Substance: LOPERAMIDE HYDROCHLORIDE

REACTIONS (21)
  - Carpal tunnel syndrome [Unknown]
  - Arthritis [Unknown]
  - White blood cell count increased [Unknown]
  - Musculoskeletal stiffness [Unknown]
  - Neuralgia [Unknown]
  - Urinary incontinence [Unknown]
  - Tinnitus [Unknown]
  - Hyperaesthesia teeth [Unknown]
  - Hypoacusis [Unknown]
  - Balance disorder [Unknown]
  - Diarrhoea [Recovered/Resolved]
  - Abdominal discomfort [Unknown]
  - Dyspepsia [Unknown]
  - Arthralgia [Unknown]
  - Swelling [Unknown]
  - Hypersensitivity [Unknown]
  - Nasal congestion [Unknown]
  - Haemoglobin abnormal [Unknown]
  - Muscle tightness [Unknown]
  - Upper limb fracture [Unknown]
  - Joint swelling [Unknown]
